FAERS Safety Report 7866525-1 (Version None)
Quarter: 2011Q4

REPORT INFORMATION
  Report Type: 
  Country: None (occurrence: None)
  Receive Date: 20111028
  Receipt Date: 20111021
  Transmission Date: 20120403
  Serious: Yes (Hospitalization)
  Sender: FDA-Public Use
  Company Number: FR-EISAI INC-E2090-01757-SPO-FR

PATIENT
  Sex: Male

DRUGS (3)
  1. ZONEGRAN [Suspect]
     Dosage: UNKNOWN
     Route: 048
     Dates: start: 20110301
  2. KEPPRA [Concomitant]
     Route: 048
     Dates: start: 20080601
  3. LAMICTAL [Concomitant]
     Route: 048
     Dates: start: 20000401

REACTIONS (1)
  - URINARY TRACT INFECTION [None]
